FAERS Safety Report 13199626 (Version 2)
Quarter: 2017Q2

REPORT INFORMATION
  Report Type: Spontaneous
  Country: PE (occurrence: PE)
  Receive Date: 20170208
  Receipt Date: 20170509
  Transmission Date: 20170830
  Serious: Yes (Other)
  Sender: FDA-Public Use
  Company Number: PE-PFIZER INC-2017046541

PATIENT
  Age: 79 Year
  Sex: Female

DRUGS (2)
  1. XALATAN [Suspect]
     Active Substance: LATANOPROST
     Indication: GLAUCOMA
     Dosage: 1 GTT, DAILY IN EACH EYE
  2. XALATAN [Suspect]
     Active Substance: LATANOPROST
     Dosage: 1 GTT, DAILY IN EACH EYE
     Dates: start: 1997

REACTIONS (3)
  - General physical health deterioration [Recovering/Resolving]
  - Bedridden [Recovering/Resolving]
  - Fall [Recovering/Resolving]
